FAERS Safety Report 4830302-6 (Version None)
Quarter: 2005Q4

REPORT INFORMATION
  Report Type: 
  Country: None (occurrence: None)
  Receive Date: 20051117
  Receipt Date: 20051111
  Transmission Date: 20060501
  Serious: Yes (Other)
  Sender: FDA-Public Use
  Company Number: BR-BRISTOL-MYERS SQUIBB COMPANY-13178892

PATIENT
  Age: 79 Year
  Sex: Female
  Weight: 62 kg

DRUGS (1)
  1. TEQUIN [Suspect]
     Indication: LOCALISED INFECTION
     Route: 048
     Dates: start: 20051109

REACTIONS (1)
  - HYPOGLYCAEMIA [None]
